FAERS Safety Report 7153741-X (Version None)
Quarter: 2010Q4

REPORT INFORMATION
  Report Type: 
  Country: None (occurrence: None)
  Receive Date: 20101213
  Receipt Date: 20101210
  Transmission Date: 20110411
  Serious: Yes (Other)
  Sender: FDA-Public Use
  Company Number: DE-SANOFI-AVENTIS-2010SA074579

PATIENT
  Sex: Female

DRUGS (1)
  1. MULTAQ [Suspect]
     Route: 065

REACTIONS (1)
  - TORSADE DE POINTES [None]
